FAERS Safety Report 20170905 (Version 1)
Quarter: 2021Q4

REPORT INFORMATION
  Report Type: Spontaneous
  Country: US (occurrence: US)
  Receive Date: 20211210
  Receipt Date: 20211210
  Transmission Date: 20220303
  Serious: Yes (Other)
  Sender: FDA-Public Use
  Company Number: US-AMGEN-USASP2021193098

PATIENT
  Age: 71 Year
  Sex: Female

DRUGS (1)
  1. REPATHA [Suspect]
     Active Substance: EVOLOCUMAB
     Indication: Blood cholesterol increased
     Dosage: 140 MILLIGRAM, QMO
     Route: 065
     Dates: start: 20211202

REACTIONS (6)
  - Neuropathy peripheral [Unknown]
  - Fall [Unknown]
  - Limb injury [Unknown]
  - Face injury [Unknown]
  - Product storage error [Unknown]
  - Inappropriate schedule of product administration [Unknown]

NARRATIVE: CASE EVENT DATE: 20210101
